FAERS Safety Report 18655077 (Version 2)
Quarter: 2021Q1

REPORT INFORMATION
  Report Type: Spontaneous
  Country: US (occurrence: US)
  Receive Date: 20201223
  Receipt Date: 20210111
  Transmission Date: 20210419
  Serious: No
  Sender: FDA-Public Use
  Company Number: US-HORIZON-2020HZN02719

PATIENT
  Age: 15 Year
  Sex: Female

DRUGS (5)
  1. CYCLINEX?2 [Concomitant]
  2. SINGULAIR [Concomitant]
     Active Substance: MONTELUKAST SODIUM
  3. ARGININE [Concomitant]
     Active Substance: ARGININE
  4. RAVICTI [Suspect]
     Active Substance: GLYCEROL PHENYLBUTYRATE
     Indication: N-ACETYLGLUTAMATE SYNTHASE DEFICIENCY
     Dosage: 3.3G (3ML) BY MOUTH TWICE A DAY WITH FOOD / FU1: THREE TIMES EVERY DAY ; TIME INTERVAL: 0.33 D
     Route: 050
     Dates: end: 20201019
  5. PRO?PHREE [Concomitant]

REACTIONS (1)
  - Off label use [Recovered/Resolved]
